FAERS Safety Report 9539522 (Version 2)
Quarter: 2013Q3

REPORT INFORMATION
  Report Type: Spontaneous
  Country: US (occurrence: US)
  Receive Date: 20130920
  Receipt Date: 20130920
  Transmission Date: 20140515
  Serious: No
  Sender: FDA-Public Use
  Company Number: US-PURDUE-USA-2011-0079222

PATIENT
  Sex: Male

DRUGS (3)
  1. BUTRANS [Suspect]
     Indication: PAIN
     Dosage: 5 MCG, Q1H
     Route: 062
  2. INSULIN [Concomitant]
     Indication: DIABETES MELLITUS
  3. LYRICA [Concomitant]
     Indication: PRODUCT USED FOR UNKNOWN INDICATION

REACTIONS (20)
  - Application site discolouration [Unknown]
  - Inappropriate affect [Unknown]
  - Application site scar [Unknown]
  - Feeling hot [Unknown]
  - Application site dryness [Unknown]
  - Application site burn [Unknown]
  - Unevaluable event [Unknown]
  - Somnolence [Unknown]
  - Paraesthesia [Unknown]
  - Application site erythema [Unknown]
  - Application site erosion [Unknown]
  - Application site pruritus [Unknown]
  - Application site rash [Unknown]
  - Fatigue [Unknown]
  - Pain [Unknown]
  - Application site pain [Unknown]
  - Memory impairment [Unknown]
  - Drug ineffective [Unknown]
  - Product quality issue [Unknown]
  - Product adhesion issue [Unknown]
